FAERS Safety Report 19758348 (Version 1)
Quarter: 2021Q3

REPORT INFORMATION
  Report Type: Report from Study
  Country: US (occurrence: US)
  Receive Date: 20210827
  Receipt Date: 20210827
  Transmission Date: 20211014
  Serious: Yes (Other)
  Sender: FDA-Public Use
  Company Number: US-JNJFOC-20210848217

PATIENT
  Age: 69 Year
  Sex: Female
  Weight: 70 kg

DRUGS (3)
  1. UPTRAVI [Suspect]
     Active Substance: SELEXIPAG
     Indication: PULMONARY ARTERIAL HYPERTENSION
     Route: 048
  2. AMLODIPINE [Concomitant]
     Active Substance: AMLODIPINE BESYLATE
  3. UPTRAVI [Suspect]
     Active Substance: SELEXIPAG
     Dosage: UPTRAVI 1200 MCG ORALLY 2 TIMES DAILY
     Route: 048

REACTIONS (3)
  - Pneumonia [Unknown]
  - Pain in jaw [Unknown]
  - Diarrhoea [Unknown]

NARRATIVE: CASE EVENT DATE: 202108
